FAERS Safety Report 20820225 (Version 1)
Quarter: 2022Q2

REPORT INFORMATION
  Report Type: Spontaneous
  Country: US (occurrence: US)
  Receive Date: 20220512
  Receipt Date: 20220512
  Transmission Date: 20220721
  Serious: No
  Sender: FDA-Public Use
  Company Number: US-PFIZER INC-202200294977

PATIENT
  Age: 43 Year
  Sex: Female

DRUGS (1)
  1. XELJANZ [Suspect]
     Active Substance: TOFACITINIB CITRATE
     Dosage: 5 MG, 2X/DAY( 5MG ORAL TWO TIMES A DAY)
     Route: 048
     Dates: start: 2020

REACTIONS (4)
  - Product dose omission issue [Unknown]
  - Herpes zoster [Recovered/Resolved]
  - Condition aggravated [Not Recovered/Not Resolved]
  - Pain [Unknown]

NARRATIVE: CASE EVENT DATE: 20220121
